FAERS Safety Report 8421579-9 (Version None)
Quarter: 2012Q2

REPORT INFORMATION
  Report Type: 
  Country: None (occurrence: None)
  Receive Date: 20120608
  Receipt Date: 20120528
  Transmission Date: 20120825
  Serious: Yes (Other)
  Sender: FDA-Public Use
  Company Number: US-JNJFOC-20120521102

PATIENT
  Age: 71 Year
  Sex: Female

DRUGS (5)
  1. DOXORUBICIN HCL [Suspect]
     Dosage: FOUR CYCLES
     Route: 042
     Dates: start: 20060101, end: 20060101
  2. CISPLATIN [Suspect]
     Indication: OVARIAN CANCER
     Route: 065
  3. CARBOPLATIN [Suspect]
     Indication: OVARIAN CANCER RECURRENT
     Dosage: FOUR CYCLES
     Route: 065
     Dates: start: 20060101, end: 20060101
  4. DOXORUBICIN HCL [Suspect]
     Indication: OVARIAN CANCER RECURRENT
     Route: 042
     Dates: start: 20060501
  5. PACLITAXEL [Suspect]
     Indication: OVARIAN CANCER
     Route: 065

REACTIONS (1)
  - TONGUE NEOPLASM MALIGNANT STAGE UNSPECIFIED [None]
